FAERS Safety Report 5368891-8 (Version None)
Quarter: 2007Q2

REPORT INFORMATION
  Report Type: 
  Country: None (occurrence: None)
  Receive Date: 20070625
  Receipt Date: 20070323
  Transmission Date: 20071010
  Serious: No
  Sender: FDA-Public Use
  Company Number: US-ASTRAZENECA-2004UW15567

PATIENT
  Age: 80 Year
  Sex: Male
  Weight: 74.8 kg

DRUGS (8)
  1. CRESTOR [Suspect]
     Route: 048
     Dates: start: 20040501
  2. NIACIN [Concomitant]
  3. NIACIN [Concomitant]
  4. LANOXIN [Concomitant]
  5. ALTACE [Concomitant]
  6. NORVASC [Concomitant]
  7. AMIODARONE HCL [Concomitant]
  8. DIGOXIN [Concomitant]

REACTIONS (4)
  - ARTHRALGIA [None]
  - HIGH DENSITY LIPOPROTEIN DECREASED [None]
  - MEMORY IMPAIRMENT [None]
  - PAIN IN EXTREMITY [None]
